FAERS Safety Report 19949575 (Version 2)
Quarter: 2022Q1

REPORT INFORMATION
  Report Type: Spontaneous
  Country: PT (occurrence: PT)
  Receive Date: 20211013
  Receipt Date: 20220324
  Transmission Date: 20220423
  Serious: Yes (Other)
  Sender: FDA-Public Use
  Company Number: PT-AUROBINDO-AUR-APL-2021-014597

PATIENT
  Age: 51 Year
  Sex: Female

DRUGS (105)
  1. AMITRIPTYLINE [Suspect]
     Active Substance: AMITRIPTYLINE
     Indication: Product used for unknown indication
     Dosage: UNK
     Route: 065
  2. DEFLAZACORT [Suspect]
     Active Substance: DEFLAZACORT
     Indication: Complex regional pain syndrome
     Dosage: UNK
     Route: 065
  3. DEFLAZACORT [Suspect]
     Active Substance: DEFLAZACORT
     Indication: Sleep disorder
  4. DEFLAZACORT [Suspect]
     Active Substance: DEFLAZACORT
     Indication: Skin disorder
  5. DEFLAZACORT [Suspect]
     Active Substance: DEFLAZACORT
     Indication: Complex regional pain syndrome
     Dosage: UNK
     Route: 065
  6. DEFLAZACORT [Suspect]
     Active Substance: DEFLAZACORT
     Indication: Sleep disorder
  7. DEFLAZACORT [Suspect]
     Active Substance: DEFLAZACORT
     Indication: Skin disorder
  8. DULOXETINE [Suspect]
     Active Substance: DULOXETINE
     Indication: Complex regional pain syndrome
     Dosage: 30 MILLIGRAM
     Route: 065
  9. DULOXETINE [Suspect]
     Active Substance: DULOXETINE
     Indication: Sleep disorder
     Dosage: 60 MILLIGRAM
     Route: 065
  10. DULOXETINE [Suspect]
     Active Substance: DULOXETINE
     Indication: Skin disorder
  11. DULOXETINE [Suspect]
     Active Substance: DULOXETINE
     Indication: Complex regional pain syndrome
     Dosage: UNK
     Route: 065
  12. DULOXETINE [Suspect]
     Active Substance: DULOXETINE
     Indication: Sleep disorder
  13. DULOXETINE [Suspect]
     Active Substance: DULOXETINE
     Indication: Skin disorder
  14. ETORICOXIB [Suspect]
     Active Substance: ETORICOXIB
     Indication: Product used for unknown indication
     Dosage: UNK
     Route: 048
  15. PALEXIA [Suspect]
     Active Substance: TAPENTADOL HYDROCHLORIDE
     Indication: Complex regional pain syndrome
     Dosage: 50 MILLIGRAM
     Route: 065
  16. PALEXIA [Suspect]
     Active Substance: TAPENTADOL HYDROCHLORIDE
     Indication: Sleep disorder
     Dosage: 100 MILLIGRAM
     Route: 065
  17. PALEXIA [Suspect]
     Active Substance: TAPENTADOL HYDROCHLORIDE
     Indication: Skin disorder
  18. LYRICA [Suspect]
     Active Substance: PREGABALIN
     Indication: Complex regional pain syndrome
     Dosage: 600 MILLIGRAM, ONCE A DAY (300 MILLIGRAM, BID)
     Route: 065
  19. METAMIZOLE MAGNESIUM [Suspect]
     Active Substance: METAMIZOLE MAGNESIUM
     Indication: Complex regional pain syndrome
     Dosage: 575 MILLIGRAM, ONCE A DAY
     Route: 065
  20. METAMIZOLE MAGNESIUM [Suspect]
     Active Substance: METAMIZOLE MAGNESIUM
     Indication: Sleep disorder
  21. METAMIZOLE MAGNESIUM [Suspect]
     Active Substance: METAMIZOLE MAGNESIUM
     Indication: Skin disorder
  22. VENLAFAXINE [Suspect]
     Active Substance: VENLAFAXINE HYDROCHLORIDE
     Indication: Complex regional pain syndrome
     Dosage: 150 MILLIGRAM, ONCE A DAY
     Route: 065
  23. VENLAFAXINE [Suspect]
     Active Substance: VENLAFAXINE HYDROCHLORIDE
     Indication: Sleep disorder
  24. VENLAFAXINE [Suspect]
     Active Substance: VENLAFAXINE HYDROCHLORIDE
     Indication: Skin disorder
  25. ACETAMINOPHEN\CODEINE PHOSPHATE [Suspect]
     Active Substance: ACETAMINOPHEN\CODEINE PHOSPHATE
     Indication: Complex regional pain syndrome
     Dosage: 350 MILLIGRAM, 3 TIMES A DAY
     Route: 065
  26. ACETAMINOPHEN\CODEINE PHOSPHATE [Suspect]
     Active Substance: ACETAMINOPHEN\CODEINE PHOSPHATE
     Dosage: 1590 MILLIGRAM, ONCE A DAY (30/500MG THREE TIMES DAILY)
     Route: 065
  27. PALEXIA [Suspect]
     Active Substance: TAPENTADOL HYDROCHLORIDE
     Indication: Product used for unknown indication
     Dosage: UNK
     Route: 065
  28. TRAZODONE HYDROCHLORIDE [Suspect]
     Active Substance: TRAZODONE HYDROCHLORIDE
     Indication: Complex regional pain syndrome
     Dosage: 150 MILLIGRAM, ONCE A DAY
     Route: 065
  29. TRAZODONE HYDROCHLORIDE [Suspect]
     Active Substance: TRAZODONE HYDROCHLORIDE
     Indication: Sleep disorder
  30. TRAZODONE HYDROCHLORIDE [Suspect]
     Active Substance: TRAZODONE HYDROCHLORIDE
     Indication: Skin disorder
  31. PENTOSAN POLYSULFATE SODIUM [Suspect]
     Active Substance: PENTOSAN POLYSULFATE SODIUM
     Indication: Complex regional pain syndrome
     Dosage: UNK
     Route: 065
  32. PENTOSAN POLYSULFATE SODIUM [Suspect]
     Active Substance: PENTOSAN POLYSULFATE SODIUM
     Indication: Sleep disorder
  33. PENTOSAN POLYSULFATE SODIUM [Suspect]
     Active Substance: PENTOSAN POLYSULFATE SODIUM
     Indication: Skin disorder
  34. IBUPROFEN [Suspect]
     Active Substance: IBUPROFEN
     Indication: Complex regional pain syndrome
     Dosage: UNK
     Route: 065
  35. IBUPROFEN [Suspect]
     Active Substance: IBUPROFEN
     Indication: Sleep disorder
  36. IBUPROFEN [Suspect]
     Active Substance: IBUPROFEN
     Indication: Skin disorder
  37. LYRICA [Suspect]
     Active Substance: PREGABALIN
     Indication: Complex regional pain syndrome
     Dosage: 75 MILLIGRAM
     Route: 065
  38. LYRICA [Suspect]
     Active Substance: PREGABALIN
     Indication: Sleep disorder
     Dosage: 600 MILLIGRAM, ONCE A DAY
     Route: 065
  39. LYRICA [Suspect]
     Active Substance: PREGABALIN
     Indication: Skin disorder
     Dosage: 150 MILLIGRAM
     Route: 065
  40. NALOXONE HYDROCHLORIDE\OXYCODONE HYDROCHLORIDE [Suspect]
     Active Substance: NALOXONE HYDROCHLORIDE\OXYCODONE HYDROCHLORIDE
     Indication: Complex regional pain syndrome
     Dosage: UNK
     Route: 065
  41. NALOXONE HYDROCHLORIDE\OXYCODONE HYDROCHLORIDE [Suspect]
     Active Substance: NALOXONE HYDROCHLORIDE\OXYCODONE HYDROCHLORIDE
     Indication: Sleep disorder
  42. NALOXONE HYDROCHLORIDE\OXYCODONE HYDROCHLORIDE [Suspect]
     Active Substance: NALOXONE HYDROCHLORIDE\OXYCODONE HYDROCHLORIDE
     Indication: Skin disorder
  43. ACETAMINOPHEN\CODEINE PHOSPHATE [Suspect]
     Active Substance: ACETAMINOPHEN\CODEINE PHOSPHATE
     Indication: Complex regional pain syndrome
     Dosage: 1590 MILLIGRAM, ONCE A DAY
     Route: 065
  44. PHENYTOIN [Suspect]
     Active Substance: PHENYTOIN
     Indication: Complex regional pain syndrome
     Dosage: 200 MILLIGRAM, ONCE A DAY
     Route: 065
  45. TRENTAL [Suspect]
     Active Substance: PENTOXIFYLLINE
     Indication: Complex regional pain syndrome
     Dosage: UNK
     Route: 065
  46. TRENTAL [Suspect]
     Active Substance: PENTOXIFYLLINE
     Indication: Sleep disorder
  47. TRENTAL [Suspect]
     Active Substance: PENTOXIFYLLINE
     Indication: Skin disorder
  48. BUPRENORPHINE [Suspect]
     Active Substance: BUPRENORPHINE
     Indication: Complex regional pain syndrome
     Dosage: 37.5 MICROGRAM/HOUR/TRANSDERMAL
     Route: 065
  49. BUPRENORPHINE [Suspect]
     Active Substance: BUPRENORPHINE
     Indication: Sleep disorder
  50. BUPRENORPHINE [Suspect]
     Active Substance: BUPRENORPHINE
     Indication: Skin disorder
  51. DEFLAZACORT [Suspect]
     Active Substance: DEFLAZACORT
     Indication: Product used for unknown indication
     Dosage: UNK
     Route: 065
  52. ACEMETACIN [Suspect]
     Active Substance: ACEMETACIN
     Indication: Complex regional pain syndrome
     Dosage: 180 MILLIGRAM, ONCE A DAY (90 MILLIGRAM, BID)
     Route: 065
  53. NORTRIPTYLINE [Suspect]
     Active Substance: NORTRIPTYLINE
     Indication: Complex regional pain syndrome
     Dosage: UNK
     Route: 065
  54. NORTRIPTYLINE [Suspect]
     Active Substance: NORTRIPTYLINE
     Indication: Sleep disorder
  55. NORTRIPTYLINE [Suspect]
     Active Substance: NORTRIPTYLINE
     Indication: Skin disorder
  56. NAPROXEN [Suspect]
     Active Substance: NAPROXEN
     Indication: Complex regional pain syndrome
     Dosage: 1000 MILLIGRAM, ONCE A DAY
     Route: 065
  57. NAPROXEN [Suspect]
     Active Substance: NAPROXEN
     Indication: Sleep disorder
     Dosage: 100 MILLIGRAM, ONCE A DAY
     Route: 065
  58. NAPROXEN [Suspect]
     Active Substance: NAPROXEN
     Indication: Skin disorder
  59. VENLAFAXINE HYDROCHLORIDE [Suspect]
     Active Substance: VENLAFAXINE HYDROCHLORIDE
     Indication: Complex regional pain syndrome
     Dosage: 150 MILLIGRAM, ONCE A DAY
     Route: 065
  60. VENLAFAXINE HYDROCHLORIDE [Suspect]
     Active Substance: VENLAFAXINE HYDROCHLORIDE
     Indication: Sleep disorder
  61. VENLAFAXINE HYDROCHLORIDE [Suspect]
     Active Substance: VENLAFAXINE HYDROCHLORIDE
     Indication: Skin disorder
  62. DIAZEPAM [Suspect]
     Active Substance: DIAZEPAM
     Indication: Complex regional pain syndrome
     Dosage: UNK
     Route: 065
  63. DIAZEPAM [Suspect]
     Active Substance: DIAZEPAM
     Indication: Sleep disorder
  64. DIAZEPAM [Suspect]
     Active Substance: DIAZEPAM
     Indication: Skin disorder
  65. VENLAFAXINE HYDROCHLORIDE [Suspect]
     Active Substance: VENLAFAXINE HYDROCHLORIDE
     Indication: Complex regional pain syndrome
     Dosage: 150 MILLIGRAM, ONCE A DAY
     Route: 065
  66. VENLAFAXINE HYDROCHLORIDE [Suspect]
     Active Substance: VENLAFAXINE HYDROCHLORIDE
     Indication: Sleep disorder
  67. VENLAFAXINE HYDROCHLORIDE [Suspect]
     Active Substance: VENLAFAXINE HYDROCHLORIDE
     Indication: Skin disorder
  68. ETORICOXIB [Suspect]
     Active Substance: ETORICOXIB
     Indication: Product used for unknown indication
     Dosage: UNK
     Route: 065
  69. CLONAZEPAM [Suspect]
     Active Substance: CLONAZEPAM
     Indication: Complex regional pain syndrome
     Dosage: 0.5 MILLIGRAM, ONCE A DAY
     Route: 065
  70. ETORICOXIB [Suspect]
     Active Substance: ETORICOXIB
     Indication: Complex regional pain syndrome
     Dosage: UNK
     Route: 048
  71. ETORICOXIB [Suspect]
     Active Substance: ETORICOXIB
     Indication: Sleep disorder
  72. ETORICOXIB [Suspect]
     Active Substance: ETORICOXIB
     Indication: Skin disorder
  73. FOSAVANCE [Suspect]
     Active Substance: ALENDRONATE SODIUM\CHOLECALCIFEROL
     Indication: Complex regional pain syndrome
     Dosage: UNK,70MG/5600UI
     Route: 065
  74. FOSAVANCE [Suspect]
     Active Substance: ALENDRONATE SODIUM\CHOLECALCIFEROL
     Indication: Sleep disorder
  75. FOSAVANCE [Suspect]
     Active Substance: ALENDRONATE SODIUM\CHOLECALCIFEROL
     Indication: Skin disorder
  76. CYCLOBENZAPRINE [Suspect]
     Active Substance: CYCLOBENZAPRINE
     Indication: Complex regional pain syndrome
     Dosage: 10 MILLIGRAM, ONCE A DAY
     Route: 065
  77. ACETAMINOPHEN [Suspect]
     Active Substance: ACETAMINOPHEN
     Indication: Complex regional pain syndrome
     Dosage: UNK
     Route: 065
  78. ACETAMINOPHEN [Suspect]
     Active Substance: ACETAMINOPHEN
     Indication: Sleep disorder
  79. ACETAMINOPHEN [Suspect]
     Active Substance: ACETAMINOPHEN
     Indication: Skin disorder
  80. TRAZODONE [Suspect]
     Active Substance: TRAZODONE HYDROCHLORIDE
     Indication: Complex regional pain syndrome
     Dosage: 150 MILLIGRAM, ONCE A DAY
     Route: 065
  81. DEFLAZACORT [Suspect]
     Active Substance: DEFLAZACORT
     Indication: Complex regional pain syndrome
     Dosage: UNK
     Route: 065
  82. DEFLAZACORT [Suspect]
     Active Substance: DEFLAZACORT
     Indication: Sleep disorder
  83. DEFLAZACORT [Suspect]
     Active Substance: DEFLAZACORT
     Indication: Skin disorder
  84. IBUPROFEN [Suspect]
     Active Substance: IBUPROFEN
     Indication: Complex regional pain syndrome
     Dosage: UNK
     Route: 065
  85. IBUPROFEN [Suspect]
     Active Substance: IBUPROFEN
     Indication: Sleep disorder
  86. IBUPROFEN [Suspect]
     Active Substance: IBUPROFEN
     Indication: Skin disorder
  87. METAMIZOLE [Suspect]
     Active Substance: METAMIZOLE
     Indication: Complex regional pain syndrome
     Dosage: 575 MILLIGRAM, ONCE A DAY
     Route: 065
  88. AMITRIPTYLINE HYDROCHLORIDE [Suspect]
     Active Substance: AMITRIPTYLINE HYDROCHLORIDE
     Indication: Product used for unknown indication
     Dosage: UNK
     Route: 065
  89. AMITRIPTYLINE HYDROCHLORIDE [Suspect]
     Active Substance: AMITRIPTYLINE HYDROCHLORIDE
     Indication: Complex regional pain syndrome
     Dosage: UNK
     Route: 065
  90. AMITRIPTYLINE HYDROCHLORIDE [Suspect]
     Active Substance: AMITRIPTYLINE HYDROCHLORIDE
     Indication: Sleep disorder
  91. AMITRIPTYLINE HYDROCHLORIDE [Suspect]
     Active Substance: AMITRIPTYLINE HYDROCHLORIDE
     Indication: Skin disorder
  92. DULOXETINE HYDROCHLORIDE [Suspect]
     Active Substance: DULOXETINE HYDROCHLORIDE
     Indication: Complex regional pain syndrome
     Dosage: UNK
     Route: 065
  93. DULOXETINE HYDROCHLORIDE [Suspect]
     Active Substance: DULOXETINE HYDROCHLORIDE
     Indication: Sleep disorder
  94. DULOXETINE HYDROCHLORIDE [Suspect]
     Active Substance: DULOXETINE HYDROCHLORIDE
     Indication: Skin disorder
  95. LYRICA [Suspect]
     Active Substance: PREGABALIN
     Indication: Complex regional pain syndrome
  96. LYRICA [Suspect]
     Active Substance: PREGABALIN
     Indication: Sleep disorder
  97. LYRICA [Suspect]
     Active Substance: PREGABALIN
     Indication: Skin disorder
  98. TOPIRAMATE [Concomitant]
     Active Substance: TOPIRAMATE
     Indication: Product used for unknown indication
     Dosage: 25 MILLIGRAM
     Route: 065
  99. TRAZODONE [Concomitant]
     Active Substance: TRAZODONE HYDROCHLORIDE
     Indication: Complex regional pain syndrome
     Dosage: 150 MILLIGRAM, ONCE A DAY
     Route: 065
  100. NAPROXEN [Concomitant]
     Active Substance: NAPROXEN
     Indication: Product used for unknown indication
     Dosage: 500 MILLIGRAM, TWO TIMES A DAY
     Route: 065
  101. LOSARTAN [Concomitant]
     Active Substance: LOSARTAN
     Indication: Product used for unknown indication
     Dosage: 100 MILLIGRAM
     Route: 065
  102. ACEMETACIN [Concomitant]
     Active Substance: ACEMETACIN
     Indication: Complex regional pain syndrome
     Dosage: 90 MILLIGRAM, TWO TIMES A DAY
     Route: 065
  103. CLONAZEPAM [Concomitant]
     Active Substance: CLONAZEPAM
     Indication: Complex regional pain syndrome
     Dosage: 0.5 MILLIGRAM, ONCE A DAY
     Route: 065
  104. CYCLOBENZAPRINE [Concomitant]
     Active Substance: CYCLOBENZAPRINE
     Indication: Complex regional pain syndrome
     Dosage: 10 MILLIGRAM, ONCE A DAY
     Route: 065
  105. PHENYTOIN [Concomitant]
     Active Substance: PHENYTOIN
     Indication: Complex regional pain syndrome
     Dosage: 100 MILLIGRAM, TWO TIMES A DAY
     Route: 065

REACTIONS (19)
  - Major depression [Unknown]
  - Suicidal ideation [Unknown]
  - Drug intolerance [Unknown]
  - Peripheral coldness [Unknown]
  - Skin atrophy [Unknown]
  - Diarrhoea [Unknown]
  - Back pain [Unknown]
  - Hyperhidrosis [Unknown]
  - Muscular weakness [Unknown]
  - Oedema [Unknown]
  - Joint contracture [Unknown]
  - Pyrexia [Unknown]
  - Hypotonia [Unknown]
  - Pain [Unknown]
  - Neck pain [Unknown]
  - Hyperaesthesia [Unknown]
  - Nausea [Unknown]
  - Allodynia [Unknown]
  - Hypokinesia [Unknown]
